FAERS Safety Report 6261773-9 (Version None)
Quarter: 2009Q3

REPORT INFORMATION
  Report Type: 
  Country: None (occurrence: None)
  Receive Date: 20090709
  Receipt Date: 20090708
  Transmission Date: 20100115
  Serious: Yes (Hospitalization, Other)
  Sender: FDA-Public Use
  Company Number: GB-SP-2009-02600

PATIENT
  Age: 69 Year
  Sex: Male

DRUGS (1)
  1. IMMUCYST [Suspect]
     Indication: BLADDER CANCER
     Route: 065

REACTIONS (6)
  - ABASIA [None]
  - ARTHRALGIA [None]
  - CHILLS [None]
  - JOINT SWELLING [None]
  - PYREXIA [None]
  - REITER'S SYNDROME [None]
